FAERS Safety Report 7031188-4 (Version None)
Quarter: 2010Q4

REPORT INFORMATION
  Report Type: 
  Country: None (occurrence: None)
  Receive Date: 20101006
  Receipt Date: 20100920
  Transmission Date: 20110411
  Serious: Yes (Death, Other)
  Sender: FDA-Public Use
  Company Number: PHEH2006US14752

PATIENT
  Sex: Female

DRUGS (17)
  1. AREDIA [Suspect]
     Indication: METASTASES TO BONE
     Dosage: 90MG EVERY 4 WEEKS
  2. ZOMETA [Suspect]
     Indication: METASTASES TO BONE
     Dosage: 4MG
  3. TAMOXIFEN CITRATE [Concomitant]
     Dosage: 20 MG, UNK
     Dates: start: 20080101
  4. CHEMOTHERAPEUTICS NOS [Concomitant]
     Dosage: UNK
     Dates: start: 20010101
  5. CELEBREX [Concomitant]
     Dosage: 200 MG, UNK
     Dates: start: 20020101
  6. SYNTHROID [Concomitant]
     Dosage: 0.125 MCG
     Dates: start: 20020101
  7. PAXIL [Concomitant]
     Dosage: 10 MG, UNK
  8. FLONASE [Concomitant]
     Dosage: 0.05 UNK, UNK
     Dates: start: 20040101
  9. COMBIVENT                               /GFR/ [Concomitant]
     Dosage: UNK
  10. AMBIEN [Concomitant]
  11. FASLODEX [Concomitant]
     Dosage: 250MG EVERY 4 WEEKS
     Dates: start: 20030401
  12. AVASTIN [Concomitant]
  13. TAXOL [Concomitant]
  14. SUDAFED 12 HOUR [Concomitant]
  15. PONTOCAINE [Concomitant]
     Route: 061
  16. AFRIN [Concomitant]
     Route: 061
  17. LEVAQUIN [Concomitant]
     Indication: SINUSITIS

REACTIONS (54)
  - ABSCESS [None]
  - ABSCESS DRAINAGE [None]
  - ALVEOLOPLASTY [None]
  - ANAEMIA [None]
  - BLOOD CALCIUM INCREASED [None]
  - BLOOD IRON DECREASED [None]
  - BLOOD TRIGLYCERIDES INCREASED [None]
  - BONE DISORDER [None]
  - DEAFNESS [None]
  - DEATH [None]
  - DEBRIDEMENT [None]
  - DENTAL CARIES [None]
  - DYSPHONIA [None]
  - ETHMOID SINUS SURGERY [None]
  - FACIAL PAIN [None]
  - FEMUR FRACTURE [None]
  - FRONTAL SINUS OPERATION [None]
  - GINGIVAL ULCERATION [None]
  - HIP FRACTURE [None]
  - INFECTION [None]
  - INJURY [None]
  - LARYNGEAL OEDEMA [None]
  - LYMPHADENOPATHY [None]
  - METASTASES TO BONE [None]
  - METASTASES TO LIVER [None]
  - METASTASES TO LUNG [None]
  - MOUTH CYST [None]
  - MUCOSAL ATROPHY [None]
  - NASAL SEPTAL OPERATION [None]
  - NERVE ROOT COMPRESSION [None]
  - ORAL DISORDER [None]
  - OROANTRAL FISTULA [None]
  - OSTEOMYELITIS [None]
  - OSTEONECROSIS OF JAW [None]
  - PAIN [None]
  - PLEURAL EFFUSION [None]
  - PRIMARY SEQUESTRUM [None]
  - PROTEIN TOTAL DECREASED [None]
  - PURULENCE [None]
  - PURULENT DISCHARGE [None]
  - PYREXIA [None]
  - REFLUX OESOPHAGITIS [None]
  - SINUS ANTROSTOMY [None]
  - SINUS HEADACHE [None]
  - SINUSITIS [None]
  - SPHENOID SINUS OPERATION [None]
  - SPINAL OSTEOARTHRITIS [None]
  - SPONDYLOLISTHESIS [None]
  - SUBCUTANEOUS ABSCESS [None]
  - TOOTH EXTRACTION [None]
  - TOOTHACHE [None]
  - TOTAL CHOLESTEROL/HDL RATIO DECREASED [None]
  - VERTEBRAL FORAMINAL STENOSIS [None]
  - WOUND DEHISCENCE [None]
